FAERS Safety Report 4642455-3 (Version None)
Quarter: 2005Q2

REPORT INFORMATION
  Report Type: 
  Country: None (occurrence: None)
  Receive Date: 20050420
  Receipt Date: 20050420
  Transmission Date: 20051028
  Serious: Yes (Life-Threatening, Hospitalization)
  Sender: FDA-Public Use
  Company Number: None

PATIENT
  Sex: Female
  Weight: 61.2356 kg

DRUGS (10)
  1. CEFAZOLIN [Suspect]
     Indication: ANTIBACTERIAL PROPHYLAXIS
     Dosage: Q8HOURS   X 6 DOSES
     Dates: start: 20050405, end: 20050406
  2. CEFAZOLIN [Suspect]
     Indication: KNEE ARTHROPLASTY
     Dosage: Q8HOURS   X 6 DOSES
     Dates: start: 20050405, end: 20050406
  3. TORADOL [Concomitant]
  4. LOVENOX [Concomitant]
  5. SENNA-S [Concomitant]
  6. FAMOTIDINE [Concomitant]
  7. MORPHINE [Concomitant]
  8. INAPSINE [Concomitant]
  9. ANZEMET [Concomitant]
  10. ANAESTESIA [Concomitant]

REACTIONS (1)
  - HAEMOLYTIC ANAEMIA [None]
